FAERS Safety Report 4690727-9 (Version None)
Quarter: 2005Q2

REPORT INFORMATION
  Report Type: 
  Country: None (occurrence: None)
  Receive Date: 20050613
  Receipt Date: 20050531
  Transmission Date: 20051028
  Serious: Yes (Hospitalization, Other)
  Sender: FDA-Public Use
  Company Number: 2005075421

PATIENT
  Age: 67 Year
  Sex: Male
  Weight: 73.0291 kg

DRUGS (11)
  1. VIAGRA [Suspect]
     Indication: ERECTILE DYSFUNCTION
     Dosage: AS NECESSARY, ORAL
     Route: 048
     Dates: start: 19900101
  2. NORVASC [Suspect]
     Indication: HYPERTENSION
     Dosage: 10 MG (5 MG, 2 IN 1 D), ORAL
     Route: 048
  3. LIPITOR [Suspect]
     Indication: ILL-DEFINED DISORDER
     Dosage: 10 MG (10 MG, 1 IN 1 D), ORAL
     Route: 048
  4. PRILOSEC [Suspect]
     Indication: OESOPHAGEAL DISORDER
     Dosage: 20 MG (20 MG, 1 IN 1 D), ORAL
     Route: 048
     Dates: start: 20050101
  5. TESTOSTERONE [Concomitant]
  6. ALPHA LIPOIC ACID (THIOCTIC ACID) [Concomitant]
  7. LISINOPRIL [Concomitant]
  8. FOLGARD (CYANOCOBALAMIN, FOLIC ACID, PYRIDOXINE HYDROCHLORIDE) [Concomitant]
  9. CALCIUM (CALCIUM) [Concomitant]
  10. VITAMIN C (VITAMIN C) [Concomitant]
  11. TEA, GREEN (TEA, GREEN) [Concomitant]

REACTIONS (12)
  - BLOOD GLUCOSE INCREASED [None]
  - BLOOD LUTEINISING HORMONE ABNORMAL [None]
  - BLOOD TESTOSTERONE DECREASED [None]
  - CAROTID ARTERY OCCLUSION [None]
  - CONDITION AGGRAVATED [None]
  - DIVERTICULUM [None]
  - DRUG EFFECT DECREASED [None]
  - DRUG INEFFECTIVE [None]
  - DRUG INTERACTION [None]
  - HIATUS HERNIA [None]
  - OESOPHAGITIS [None]
  - ULCER [None]
